FAERS Safety Report 9742710 (Version 2)
Quarter: 2015Q3

REPORT INFORMATION
  Report Type: Spontaneous
  Country: US (occurrence: US)
  Receive Date: 20131210
  Receipt Date: 20150805
  Transmission Date: 20151125
  Serious: No
  Sender: FDA-Public Use
  Company Number: US-GILEAD-2009-0025796

PATIENT
  Age: 64 Year
  Sex: Female

DRUGS (7)
  1. DIGOXIN. [Concomitant]
     Active Substance: DIGOXIN
  2. BENICAR [Concomitant]
     Active Substance: OLMESARTAN MEDOXOMIL
  3. LETAIRIS [Suspect]
     Active Substance: AMBRISENTAN
     Indication: PULMONARY ARTERIAL HYPERTENSION
     Route: 048
     Dates: start: 20091029, end: 20091116
  4. FOLIC ACID. [Concomitant]
     Active Substance: FOLIC ACID
  5. ZETIA [Concomitant]
     Active Substance: EZETIMIBE
  6. REVATIO [Concomitant]
     Active Substance: SILDENAFIL CITRATE
  7. LANOXIN [Concomitant]
     Active Substance: DIGOXIN

REACTIONS (1)
  - Dyspnoea [Unknown]

NARRATIVE: CASE EVENT DATE: 20091029
